FAERS Safety Report 20668382 (Version 1)
Quarter: 2022Q2

REPORT INFORMATION
  Report Type: Spontaneous
  Country: US (occurrence: None)
  Receive Date: 20220401
  Receipt Date: 20220401
  Transmission Date: 20220720
  Serious: Yes (Other)
  Sender: FDA-Public Use
  Company Number: None

PATIENT
  Age: 24 Year
  Sex: Female

DRUGS (2)
  1. PROPRANOLOL [Suspect]
     Active Substance: PROPRANOLOL HYDROCHLORIDE
  2. TOPAMAX [Suspect]
     Active Substance: TOPIRAMATE

REACTIONS (2)
  - Drug ineffective [None]
  - Insurance issue [None]

NARRATIVE: CASE EVENT DATE: 20220401
